FAERS Safety Report 7779217-4 (Version None)
Quarter: 2011Q3

REPORT INFORMATION
  Report Type: 
  Country: None (occurrence: None)
  Receive Date: 20110926
  Receipt Date: 20110908
  Transmission Date: 20111222
  Serious: Yes (Death, Hospitalization)
  Sender: FDA-Public Use
  Company Number: AU-GLAXOSMITHKLINE-B0744266A

PATIENT

DRUGS (14)
  1. LIPITOR [Concomitant]
     Indication: HYPERLIPIDAEMIA
     Route: 048
     Dates: start: 20080301, end: 20110821
  2. METFORMIN HCL [Concomitant]
     Indication: TYPE 2 DIABETES MELLITUS
     Route: 065
     Dates: start: 20080301, end: 20110821
  3. PANTOPRAZOLE [Concomitant]
     Route: 065
     Dates: start: 20110712, end: 20110821
  4. DIGOXIN [Concomitant]
     Indication: ATRIAL FIBRILLATION
     Route: 065
     Dates: start: 20080301, end: 20110821
  5. PRAMIPEXOLE DIHYDROCHLORIDE [Concomitant]
     Indication: MYOCLONUS
     Route: 065
     Dates: start: 20110113, end: 20110821
  6. DESVENLAFAXINE SUCCINATE [Concomitant]
     Indication: DEPRESSION
     Route: 065
  7. AMBRISENTAN [Suspect]
     Indication: PULMONARY ARTERIAL HYPERTENSION
     Route: 048
     Dates: start: 20101220, end: 20110821
  8. ATENOLOL [Concomitant]
     Indication: HYPERTENSION
     Route: 048
     Dates: start: 20080801, end: 20110821
  9. LASIX [Concomitant]
     Indication: POLYURIA
     Route: 048
     Dates: start: 20081001, end: 20110821
  10. SITAXSENTAN [Suspect]
     Indication: PULMONARY ARTERIAL HYPERTENSION
     Route: 048
     Dates: start: 20081101, end: 20101215
  11. ASPIRIN [Concomitant]
     Indication: ATRIAL FIBRILLATION
     Route: 048
     Dates: end: 20110821
  12. ALDACTONE [Concomitant]
     Indication: HYPERTENSION
     Route: 065
     Dates: start: 20080301, end: 20110821
  13. REVATIO [Suspect]
     Indication: PULMONARY ARTERIAL HYPERTENSION
     Route: 048
     Dates: start: 20101101, end: 20110821
  14. CHOLECALCIFEROL [Concomitant]
     Route: 065

REACTIONS (9)
  - PANCREATITIS [None]
  - ASTHENIA [None]
  - DIARRHOEA [None]
  - DYSPNOEA [None]
  - ABDOMINAL PAIN [None]
  - RENAL FAILURE [None]
  - CARDIAC FAILURE [None]
  - LETHARGY [None]
  - OEDEMA PERIPHERAL [None]
